FAERS Safety Report 5904836-7 (Version None)
Quarter: 2008Q3

REPORT INFORMATION
  Report Type: 
  Country: None (occurrence: None)
  Receive Date: 20080909
  Receipt Date: 20080314
  Transmission Date: 20090109
  Serious: Yes (Life-Threatening)
  Sender: FDA-Public Use
  Company Number: 163-20785-08030927

PATIENT
  Age: 14 Year
  Sex: Female
  Weight: 55.8 kg

DRUGS (8)
  1. THALOMID [Suspect]
     Indication: NEURILEMMOMA MALIGNANT
     Dosage: 500 MG, DAILY, ORAL
     Route: 048
     Dates: start: 20071130
  2. CYCLOPHOSPHAMIDE [Suspect]
     Indication: NEURILEMMOMA MALIGNANT
     Dosage: 100 MG, QD, ORAL; 100 MG, QD
     Route: 048
     Dates: start: 20071221, end: 20080110
  3. CYCLOPHOSPHAMIDE [Suspect]
     Indication: NEURILEMMOMA MALIGNANT
     Dosage: 100 MG, QD, ORAL; 100 MG, QD
     Route: 048
     Dates: start: 20080201, end: 20080208
  4. CELEBREX [Suspect]
     Indication: NEURILEMMOMA MALIGNANT
     Dosage: 300 MG, QD
     Dates: start: 20071130
  5. FENOFIBRATE [Suspect]
     Indication: NEURILEMMOMA MALIGNANT
     Dosage: 145 MG
     Dates: start: 20071130
  6. ETOPOSIDE [Suspect]
     Indication: NEURILEMMOMA MALIGNANT
     Dosage: 80 MG, QD
     Dates: start: 20071130
  7. NEURONTIN [Concomitant]
  8. LYRICA [Concomitant]

REACTIONS (1)
  - NEUTROPHIL COUNT DECREASED [None]
